FAERS Safety Report 8354350-7 (Version None)
Quarter: 2012Q2

REPORT INFORMATION
  Report Type: 
  Country: None (occurrence: None)
  Receive Date: 20120511
  Receipt Date: 20120501
  Transmission Date: 20120825
  Serious: No
  Sender: FDA-Public Use
  Company Number: US-JNJFOC-20120503605

PATIENT
  Sex: Female
  Weight: 45.36 kg

DRUGS (2)
  1. DURAGESIC-100 [Suspect]
     Indication: CEREBRAL PALSY
     Route: 062
     Dates: start: 20080101, end: 20090101
  2. DURAGESIC-100 [Suspect]
     Route: 062
     Dates: start: 20090101

REACTIONS (2)
  - WRONG TECHNIQUE IN DRUG USAGE PROCESS [None]
  - PRODUCT ADHESION ISSUE [None]
